FAERS Safety Report 6920397-8 (Version None)
Quarter: 2010Q3

REPORT INFORMATION
  Report Type: 
  Country: None (occurrence: None)
  Receive Date: 20100812
  Receipt Date: 20100803
  Transmission Date: 20110219
  Serious: Yes (Hospitalization)
  Sender: FDA-Public Use
  Company Number: US-BIOGENIDEC-2009BI026282

PATIENT
  Age: 58 Year
  Sex: Male

DRUGS (1)
  1. TYSABRI [Suspect]
     Indication: MULTIPLE SCLEROSIS
     Route: 042
     Dates: start: 20090601

REACTIONS (6)
  - BACK PAIN [None]
  - FALL [None]
  - MULTIPLE SCLEROSIS [None]
  - PNEUMONIA [None]
  - SECONDARY PROGRESSIVE MULTIPLE SCLEROSIS [None]
  - SPINAL COLUMN STENOSIS [None]
